FAERS Safety Report 5963459-4 (Version None)
Quarter: 2008Q4

REPORT INFORMATION
  Report Type: 
  Country: None (occurrence: None)
  Receive Date: 20081124
  Receipt Date: 20081118
  Transmission Date: 20090506
  Serious: Yes (Other)
  Sender: FDA-Public Use
  Company Number: JP-ASTRAZENECA-2007AP08145

PATIENT
  Age: 17017 Day
  Sex: Female
  Weight: 61.5 kg

DRUGS (2)
  1. NOLVADEX [Suspect]
     Indication: BREAST CANCER
     Route: 048
     Dates: start: 20050614, end: 20071030
  2. ZOLADEX [Suspect]
     Indication: BREAST CANCER
     Route: 058
     Dates: start: 20050614, end: 20070403

REACTIONS (1)
  - HEPATIC STEATOSIS [None]
